FAERS Safety Report 9380815 (Version 1)
Quarter: 2013Q3

REPORT INFORMATION
  Report Type: Spontaneous
  Country: FR (occurrence: FR)
  Receive Date: 20130702
  Receipt Date: 20130702
  Transmission Date: 20140515
  Serious: Yes (Hospitalization)
  Sender: FDA-Public Use
  Company Number: FR-009507513-1306FRA014341

PATIENT
  Age: 47 Year
  Sex: Female

DRUGS (6)
  1. ISENTRESS [Suspect]
     Indication: HIV INFECTION
     Dosage: 400 MG, BID
     Route: 048
     Dates: start: 201202
  2. TRUVADA [Suspect]
     Indication: HIV INFECTION
     Dosage: 1 DF, QD
     Route: 048
     Dates: start: 201202
  3. OMEPRAZOLE [Interacting]
     Indication: GASTRITIS
     Dosage: 20 MG, QD
     Route: 048
     Dates: start: 201105
  4. KALEORID [Concomitant]
  5. PREVISCAN [Concomitant]
  6. STILNOX [Concomitant]

REACTIONS (2)
  - Oedema [Not Recovered/Not Resolved]
  - Drug interaction [Unknown]
